FAERS Safety Report 8989231 (Version 1)
Quarter: 2012Q4

REPORT INFORMATION
  Report Type: Spontaneous
  Country: US (occurrence: None)
  Receive Date: 20121219
  Receipt Date: 20121219
  Transmission Date: 20130627
  Serious: Yes (Death)
  Sender: FDA-Public Use
  Company Number: 2011000231

PATIENT
  Age: 52 Year
  Sex: Male
  Weight: 76 kg

DRUGS (1)
  1. TARCEVA (ERLOTINIB HYDROCHLORIDE) TABLET [Suspect]
     Indication: LUNG CARCINOMA CELL TYPE UNSPECIFIED STAGE 0
     Dosage: UID/QD
     Route: 048
     Dates: start: 201012, end: 201212

REACTIONS (3)
  - Respiratory failure [None]
  - Rash [None]
  - Rash [None]
